FAERS Safety Report 13350986 (Version 1)
Quarter: 2017Q1

REPORT INFORMATION
  Report Type: Spontaneous
  Country: US (occurrence: US)
  Receive Date: 20170320
  Receipt Date: 20170320
  Transmission Date: 20170429
  Serious: No
  Sender: FDA-Public Use
  Company Number: US-PFIZER INC-2017117603

PATIENT
  Sex: Male
  Weight: 91 kg

DRUGS (1)
  1. VIAGRA [Suspect]
     Active Substance: SILDENAFIL CITRATE
     Indication: ERECTILE DYSFUNCTION
     Dosage: 25 MG, 1X/DAY; AT NIGHT
     Route: 048
     Dates: start: 201610

REACTIONS (2)
  - Ejaculation disorder [Recovering/Resolving]
  - Erection increased [Recovering/Resolving]

NARRATIVE: CASE EVENT DATE: 201611
